FAERS Safety Report 23341663 (Version 1)
Quarter: 2023Q4

REPORT INFORMATION
  Report Type: Spontaneous
  Country: US (occurrence: None)
  Receive Date: 20231226
  Receipt Date: 20231226
  Transmission Date: 20240109
  Serious: No
  Sender: FDA-Public Use
  Company Number: None

PATIENT
  Sex: Female

DRUGS (8)
  1. DALFAMPRIDINE [Suspect]
     Active Substance: DALFAMPRIDINE
     Indication: Multiple sclerosis
     Dosage: FREQUENCY : TWICE A DAY;?
     Route: 048
     Dates: start: 201812
  2. LISINOPRIL [Concomitant]
  3. OXYBUTININ CHLORIDE [Concomitant]
  4. METFORMIN HCL [Concomitant]
  5. LASIX [Concomitant]
  6. ELIQUIS [Concomitant]
  7. DALFAMPRIDINE [Concomitant]
  8. ASPIRIN [Concomitant]

REACTIONS (1)
  - Drug ineffective [None]
